FAERS Safety Report 19468566 (Version 3)
Quarter: 2022Q1

REPORT INFORMATION
  Report Type: Spontaneous
  Country: IT (occurrence: GB)
  Receive Date: 20210628
  Receipt Date: 20220113
  Transmission Date: 20220423
  Serious: Yes (Other)
  Sender: FDA-Public Use
  Company Number: GB-ACRAF SPA-2021-024307

PATIENT

DRUGS (3)
  1. LURASIDONE HYDROCHLORIDE [Suspect]
     Active Substance: LURASIDONE HYDROCHLORIDE
     Indication: Product used for unknown indication
     Dosage: 37 MILLIGRAM
     Route: 065
     Dates: start: 20190312, end: 20191008
  2. SERTRALINE [Concomitant]
     Active Substance: SERTRALINE HYDROCHLORIDE
  3. OLANZAPINE [Concomitant]
     Active Substance: OLANZAPINE

REACTIONS (8)
  - Acute psychosis [Recovering/Resolving]
  - Mental impairment [Recovering/Resolving]
  - Schizophrenia [Recovering/Resolving]
  - Treatment noncompliance [Unknown]
  - Drug ineffective [Recovering/Resolving]
  - Laziness [Recovering/Resolving]
  - Feeling cold [Recovering/Resolving]
  - Dizziness [Recovering/Resolving]

NARRATIVE: CASE EVENT DATE: 20190920
